FAERS Safety Report 20930357 (Version 1)
Quarter: 2022Q2

REPORT INFORMATION
  Report Type: Spontaneous
  Country: AU (occurrence: AU)
  Receive Date: 20220608
  Receipt Date: 20220608
  Transmission Date: 20220721
  Serious: Yes (Other)
  Sender: FDA-Public Use
  Company Number: AU-SUN PHARMACEUTICAL INDUSTRIES LTD-2022RR-339965

PATIENT
  Age: 48 Year
  Sex: Male

DRUGS (6)
  1. OLANZAPINE [Suspect]
     Active Substance: OLANZAPINE
     Indication: Psychotic disorder
     Dosage: UNK
     Route: 065
  2. QUETIAPINE [Suspect]
     Active Substance: QUETIAPINE
     Indication: Psychotic disorder
     Dosage: UNK
     Route: 065
  3. AMISULPRIDE [Suspect]
     Active Substance: AMISULPRIDE
     Indication: Psychotic disorder
     Dosage: UNK
     Route: 065
  4. CLOZAPINE [Suspect]
     Active Substance: CLOZAPINE
     Indication: Psychotic disorder
     Dosage: 250 MILLIGRAM
     Route: 065
  5. CLOZAPINE [Suspect]
     Active Substance: CLOZAPINE
     Dosage: 450 MILLIGRAM
     Route: 065
  6. ESCITALOPRAM [Concomitant]
     Active Substance: ESCITALOPRAM OXALATE
     Indication: Product used for unknown indication
     Dosage: 20 MILLIGRAM, DAILY
     Route: 065

REACTIONS (3)
  - Drug ineffective [Unknown]
  - Therapeutic product effect incomplete [Unknown]
  - Orthostatic hypotension [Unknown]
